FAERS Safety Report 14677095 (Version 1)
Quarter: 2018Q1

REPORT INFORMATION
  Report Type: Spontaneous
  Country: US (occurrence: US)
  Receive Date: 20180323
  Receipt Date: 20180323
  Transmission Date: 20180509
  Serious: Yes (Hospitalization)
  Sender: FDA-Public Use
  Company Number: None

PATIENT
  Age: 57 Year
  Sex: Male

DRUGS (2)
  1. CISPLATIN. [Suspect]
     Active Substance: CISPLATIN
     Dates: end: 20180223
  2. ETOPOSIDE (VP-16) [Suspect]
     Active Substance: ETOPOSIDE
     Dates: end: 20180223

REACTIONS (11)
  - Pulmonary mass [None]
  - Pyrexia [None]
  - Fatigue [None]
  - Hypoventilation [None]
  - Hepatosplenomegaly [None]
  - Dyspnoea [None]
  - Hepatic lesion [None]
  - Sputum increased [None]
  - Pneumonia [None]
  - Cough [None]
  - Adrenomegaly [None]

NARRATIVE: CASE EVENT DATE: 20180309
